FAERS Safety Report 4465126-5 (Version None)
Quarter: 2004Q3

REPORT INFORMATION
  Report Type: 
  Country: None (occurrence: None)
  Receive Date: 20040929
  Receipt Date: 20040908
  Transmission Date: 20050211
  Serious: Yes (Other)
  Sender: FDA-Public Use
  Company Number: USA040977720

PATIENT
  Age: 68 Year
  Sex: Male
  Weight: 109 kg

DRUGS (2)
  1. HUMULIN U [Suspect]
     Dates: start: 19940101
  2. HUMALOG [Suspect]
     Dates: start: 20040720, end: 20040909

REACTIONS (5)
  - ANKLE FRACTURE [None]
  - ARTERIAL BYPASS OPERATION [None]
  - GASTRIC DISORDER [None]
  - LOSS OF CONSCIOUSNESS [None]
  - MEDICATION ERROR [None]
